FAERS Safety Report 17419660 (Version 1)
Quarter: 2020Q1

REPORT INFORMATION
  Report Type: Spontaneous
  Country: US (occurrence: US)
  Receive Date: 20200130
  Receipt Date: 20200130
  Transmission Date: 20200409
  Serious: No
  Sender: FDA-Public Use
  Company Number: None

PATIENT
  Age: 78 Year
  Sex: Male
  Weight: 80.74 kg

DRUGS (1)
  1. DULOXETINE (DULOXETINE HCL 60MG CAP, EC) [Suspect]
     Active Substance: DULOXETINE HYDROCHLORIDE
     Route: 048
     Dates: start: 20190930, end: 20191030

REACTIONS (1)
  - Dizziness [None]

NARRATIVE: CASE EVENT DATE: 20191030
